FAERS Safety Report 9323997 (Version 1)
Quarter: 2013Q2

REPORT INFORMATION
  Report Type: Spontaneous
  Country: GB (occurrence: GB)
  Receive Date: 20130603
  Receipt Date: 20130603
  Transmission Date: 20140414
  Serious: Yes (Hospitalization, Other)
  Sender: FDA-Public Use
  Company Number: GB-PFIZER INC-2007312522

PATIENT
  Sex: Female

DRUGS (16)
  1. IBUPROFEN [Suspect]
     Dosage: 400 MG, 3X/DAY
     Route: 048
     Dates: start: 20070115, end: 20070213
  2. CLOPIDOGREL SULFATE [Suspect]
     Dosage: 75 MG, 1X/DAY
     Route: 048
     Dates: start: 20070213
  3. RISEDRONATE SODIUM [Suspect]
     Dosage: 35 MG, WEEKLY
     Route: 048
  4. ALFACALCIDOL [Concomitant]
     Dosage: 0.25 UG, 1X/DAY
     Route: 048
  5. BECOTIDE [Concomitant]
     Dosage: 200 UG, 2X/DAY
     Route: 055
  6. CALCIUM CARBONATE [Concomitant]
     Dosage: UNSPECIFIED
     Route: 048
  7. COMBIVENT [Concomitant]
     Dosage: UNSPECIFIED
     Route: 055
  8. EFLORNITHINE [Concomitant]
     Dosage: UNSPECIFIED
     Route: 065
  9. ESOMEPRAZOLE [Concomitant]
     Dosage: 40 MG, 1X/DAY
     Route: 048
  10. FELODIPINE [Concomitant]
     Dosage: 2.5 MG, 1X/DAY
     Route: 048
  11. FELODIPINE [Concomitant]
     Dosage: 200 MG, 2X/DAY
  12. HYPROMELLOSE [Concomitant]
     Dosage: UNSPECIFIED, AS NECESSARY
     Route: 065
  13. LACRI-LUBE [Concomitant]
     Dosage: UNSPECIFIED
     Route: 065
  14. PERINDOPRIL [Concomitant]
     Dosage: 4 MG, 1X/DAY
     Route: 048
  15. PRAVASTATIN [Concomitant]
     Dosage: 40 MG, 1X/DAY
     Route: 048
  16. SEREVENT [Concomitant]
     Dosage: UNSPECIFIED
     Route: 055

REACTIONS (1)
  - Gastric ulcer [Recovering/Resolving]
